FAERS Safety Report 8495809-1 (Version None)
Quarter: 2012Q3

REPORT INFORMATION
  Report Type: 
  Country: None (occurrence: None)
  Receive Date: 20120709
  Receipt Date: 20120703
  Transmission Date: 20120928
  Serious: Yes (Other)
  Sender: FDA-Public Use
  Company Number: PHEH2012US006405

PATIENT
  Sex: Female

DRUGS (1)
  1. GILENYA [Suspect]
     Dosage: 0.5 MG, OT
     Route: 048
     Dates: start: 20110128

REACTIONS (11)
  - VENOUS STENOSIS [None]
  - HEADACHE [None]
  - ASTHENIA [None]
  - SENSORY DISTURBANCE [None]
  - EYE SWELLING [None]
  - GAIT DISTURBANCE [None]
  - HEPATIC ENZYME INCREASED [None]
  - WHITE BLOOD CELL COUNT DECREASED [None]
  - HEMIPARESIS [None]
  - HYPOAESTHESIA [None]
  - VISUAL IMPAIRMENT [None]
